FAERS Safety Report 22600202 (Version 2)
Quarter: 2023Q2

REPORT INFORMATION
  Report Type: Spontaneous
  Country: PT (occurrence: PT)
  Receive Date: 20230614
  Receipt Date: 20230623
  Transmission Date: 20230722
  Serious: Yes (Other)
  Sender: FDA-Public Use
  Company Number: PT-002147023-NVSC2023PT125432

PATIENT
  Age: 84 Year
  Sex: Female

DRUGS (2)
  1. BEOVU [Suspect]
     Active Substance: BROLUCIZUMAB-DBLL
     Indication: Neovascular age-related macular degeneration
     Dosage: UNK (RIGHT EYE)
     Route: 065
     Dates: start: 20221213
  2. BEOVU [Suspect]
     Active Substance: BROLUCIZUMAB-DBLL
     Dosage: UNK (RIGHT EYE)
     Route: 065
     Dates: start: 20230110

REACTIONS (10)
  - Retinal occlusive vasculitis [Unknown]
  - Retinal haemorrhage [Unknown]
  - Blindness [Recovering/Resolving]
  - Retinal fibrosis [Recovered/Resolved with Sequelae]
  - Retinal degeneration [Recovered/Resolved with Sequelae]
  - Retinal artery occlusion [Unknown]
  - Uveitis [Unknown]
  - Vitritis [Unknown]
  - Photophobia [Unknown]
  - Visual impairment [Unknown]

NARRATIVE: CASE EVENT DATE: 20230111
